FAERS Safety Report 26019610 (Version 2)
Quarter: 2025Q4

REPORT INFORMATION
  Report Type: Spontaneous
  Country: US (occurrence: US)
  Receive Date: 20251110
  Receipt Date: 20251113
  Transmission Date: 20260117
  Serious: No
  Sender: TORRENT PHARMA INC.
  Company Number: US-TORRENT-00014591

PATIENT
  Age: 54 Year
  Sex: Female

DRUGS (1)
  1. ZOLPIDEM TARTRATE [Suspect]
     Active Substance: ZOLPIDEM TARTRATE
     Indication: Insomnia
     Dosage: ONE 1/2 TO ONE TABLET BY MOUTH AT BEDTIME, SO THAT WOULD BE 5 TO 10 MILLIGRAMS AT BEDTIME
     Route: 048
     Dates: start: 20251009

REACTIONS (1)
  - Drug ineffective [Unknown]
